FAERS Safety Report 4699679-9 (Version None)
Quarter: 2005Q2

REPORT INFORMATION
  Report Type: 
  Country: None (occurrence: None)
  Receive Date: 20050623
  Receipt Date: 20050616
  Transmission Date: 20051028
  Serious: Yes (Other)
  Sender: FDA-Public Use
  Company Number: 2005-04-2158

PATIENT
  Age: 58 Year
  Sex: Female

DRUGS (5)
  1. VIRAFERONPEG [Suspect]
     Indication: HEPATITIS C
     Dosage: 3 MIU TIW
     Dates: start: 19991101, end: 20001001
  2. REBETOL [Suspect]
     Indication: HEPATITIS C
     Dosage: 1000 MG ORAL
     Route: 048
     Dates: start: 19991101, end: 20001001
  3. LAXATIVES (NOS) [Concomitant]
  4. ANTACID (NOS) [Concomitant]
  5. ANTISPASMODICS (NOS) [Concomitant]

REACTIONS (2)
  - FIBROMYALGIA [None]
  - PROCTALGIA [None]
